FAERS Safety Report 6639435-5 (Version None)
Quarter: 2010Q1

REPORT INFORMATION
  Report Type: 
  Country: None (occurrence: None)
  Receive Date: 20100315
  Receipt Date: 20100302
  Transmission Date: 20100710
  Serious: No
  Sender: FDA-Public Use
  Company Number: 008165

PATIENT
  Sex: Female
  Weight: 104 kg

DRUGS (8)
  1. LEVETIRACETAM [Suspect]
     Indication: CONVULSION
     Dosage: (750 MG BID ORAL), (750 MG QD, 750 MG QAM ORAL)
     Route: 048
     Dates: start: 20091201, end: 20100201
  2. LEVETIRACETAM [Suspect]
     Indication: CONVULSION
     Dosage: (750 MG BID ORAL), (750 MG QD, 750 MG QAM ORAL)
     Route: 048
     Dates: start: 20100201
  3. KEPPRA [Suspect]
     Indication: CONVULSION
     Dosage: (500 MG BID, STARTED FROM YEARS AGO ORAL), (750 MG BID, STARTED YEARS AGO ORAL), (750 MG QD, 750 MG
     Route: 048
     Dates: start: 20091201
  4. KEPPRA [Suspect]
     Indication: CONVULSION
     Dosage: (500 MG BID, STARTED FROM YEARS AGO ORAL), (750 MG BID, STARTED YEARS AGO ORAL), (750 MG QD, 750 MG
     Route: 048
     Dates: start: 20100201
  5. TRIAMTERENE AND HYDROCHLOROTHIAZIDE [Concomitant]
  6. PREMARIN [Concomitant]
  7. CALTRATE [Concomitant]
  8. VITAMIN B-12 [Concomitant]

REACTIONS (3)
  - DEPRESSION [None]
  - INSOMNIA [None]
  - MEDICATION ERROR [None]
